FAERS Safety Report 15713895 (Version 1)
Quarter: 2018Q4

REPORT INFORMATION
  Report Type: Spontaneous
  Country: US (occurrence: US)
  Receive Date: 20181212
  Receipt Date: 20181212
  Transmission Date: 20190205
  Serious: No
  Sender: FDA-Public Use
  Company Number: US-ENDO PHARMACEUTICALS INC-2018-039561

PATIENT
  Age: 64 Year
  Sex: Male
  Weight: 49.89 kg

DRUGS (1)
  1. TESTIM [Suspect]
     Active Substance: TESTOSTERONE
     Indication: BLOOD TESTOSTERONE DECREASED
     Dosage: 50 MG, DAILY
     Route: 061
     Dates: start: 20180328, end: 20180402

REACTIONS (7)
  - Drug ineffective [Not Recovered/Not Resolved]
  - Product administered at inappropriate site [Recovered/Resolved]
  - Hyperaesthesia [Not Recovered/Not Resolved]
  - Skin irritation [Not Recovered/Not Resolved]
  - Nipple inflammation [Not Recovered/Not Resolved]
  - Nipple pain [Not Recovered/Not Resolved]
  - Breast inflammation [Unknown]

NARRATIVE: CASE EVENT DATE: 2018
